FAERS Safety Report 7624589-4 (Version None)
Quarter: 2011Q3

REPORT INFORMATION
  Report Type: 
  Country: None (occurrence: None)
  Receive Date: 20110720
  Receipt Date: 20110711
  Transmission Date: 20111222
  Serious: Yes (Other)
  Sender: FDA-Public Use
  Company Number: US-BAYER-201039666NA

PATIENT
  Age: 22 Year
  Sex: Female
  Weight: 44.898 kg

DRUGS (13)
  1. YASMIN [Suspect]
     Indication: PRODUCT USED FOR UNKNOWN INDICATION
  2. PROZAC [Concomitant]
  3. XANAX [Concomitant]
  4. ALPRAZOLAM [Concomitant]
     Dosage: 0.25 MG, UNK
     Route: 048
  5. LEXAPRO [Concomitant]
  6. PROCTOFOAM [PRAMOCAINE HYDROCHLORIDE] [Concomitant]
  7. CARAFATE [Concomitant]
  8. DONNATAL [Concomitant]
     Dosage: UNK
  9. NITROFURANTOIN [Concomitant]
     Dosage: 100 MG, UNK
     Route: 048
  10. PHENERGAN HCL [Concomitant]
  11. HYDROCORTISONE [Concomitant]
  12. BENTYL [Concomitant]
  13. PHENAZOPYRIDINE HCL TAB [Concomitant]

REACTIONS (3)
  - CHOLECYSTITIS [None]
  - GALLBLADDER NON-FUNCTIONING [None]
  - GALLBLADDER INJURY [None]
